FAERS Safety Report 7575291-9 (Version None)
Quarter: 2011Q2

REPORT INFORMATION
  Report Type: 
  Country: None (occurrence: None)
  Receive Date: 20110627
  Receipt Date: 20110621
  Transmission Date: 20111010
  Serious: Yes (Hospitalization)
  Sender: FDA-Public Use
  Company Number: US-AMGEN-USASP2011031031

PATIENT
  Age: 75 Year
  Weight: 84.8 kg

DRUGS (11)
  1. TYLENOL (CAPLET) [Concomitant]
  2. BACTRIM DS [Concomitant]
     Dosage: UNK UNK, QD
     Route: 048
  3. NPLATE [Suspect]
     Indication: IDIOPATHIC THROMBOCYTOPENIC PURPURA
     Dosage: UNK UNK, QWK
     Route: 058
     Dates: start: 20110101
  4. TRAMADOL HCL [Concomitant]
  5. OMEPRAZOLE [Concomitant]
     Dosage: UNK UNK, QD
     Route: 048
  6. LASIX [Concomitant]
  7. GLIPIZIDE [Concomitant]
  8. METFORMIN HCL [Concomitant]
     Dosage: UNK UNK, BID
     Route: 048
  9. PREDNISONE [Concomitant]
     Dosage: UNK UNK, QOD
     Route: 048
  10. ACYCLOVIR [Concomitant]
  11. CYMBALTA [Concomitant]

REACTIONS (1)
  - ARTERIAL THROMBOSIS [None]
